FAERS Safety Report 15487713 (Version 1)
Quarter: 2018Q4

REPORT INFORMATION
  Report Type: Spontaneous
  Country: IT (occurrence: IT)
  Receive Date: 20181011
  Receipt Date: 20181011
  Transmission Date: 20190205
  Serious: Yes (Hospitalization)
  Sender: FDA-Public Use
  Company Number: IT-NOVAST LABORATORIES, LTD-IT-2018NOV000359

PATIENT
  Age: 82 Year
  Sex: Female

DRUGS (1)
  1. CARISOPRODOL\ASPIRIN [Suspect]
     Active Substance: ASPIRIN\CARISOPRODOL
     Indication: CORONARY ARTERY STENOSIS
     Dosage: 75 MG, QD

REACTIONS (1)
  - Epistaxis [Recovered/Resolved]
